FAERS Safety Report 19938893 (Version 25)
Quarter: 2024Q4

REPORT INFORMATION
  Report Type: Spontaneous
  Country: CA (occurrence: CA)
  Receive Date: 20211011
  Receipt Date: 20241115
  Transmission Date: 20250115
  Serious: Yes (Death, Hospitalization, Disabling, Other)
  Sender: MYLAN
  Company Number: CA-ABBOTT-11P-028-0710272-00

PATIENT
  Age: 54 Year
  Sex: Male

DRUGS (137)
  1. VALPROIC ACID [Interacting]
     Active Substance: VALPROIC ACID
     Indication: Bipolar disorder
     Dosage: UNK
     Route: 048
  2. VALPROIC ACID [Interacting]
     Active Substance: VALPROIC ACID
     Dosage: UNK
     Route: 048
  3. VALPROIC ACID [Interacting]
     Active Substance: VALPROIC ACID
     Dosage: 400 MILLIGRAM, BID
     Route: 048
  4. VALPROIC ACID [Interacting]
     Active Substance: VALPROIC ACID
     Indication: Product used for unknown indication
     Dosage: UNK
     Route: 065
  5. SERTRALINE [Interacting]
     Active Substance: SERTRALINE HYDROCHLORIDE
     Indication: Bipolar disorder
     Dosage: UNK
     Route: 065
  6. SERTRALINE [Interacting]
     Active Substance: SERTRALINE HYDROCHLORIDE
     Indication: HIV infection
     Dosage: UNK
     Route: 048
  7. SERTRALINE [Interacting]
     Active Substance: SERTRALINE HYDROCHLORIDE
     Dosage: 400 MILLIGRAM, BID
     Route: 048
  8. SERTRALINE [Interacting]
     Active Substance: SERTRALINE HYDROCHLORIDE
     Dosage: UNK
     Route: 048
  9. SERTRALINE [Interacting]
     Active Substance: SERTRALINE HYDROCHLORIDE
     Dosage: UNK
     Route: 065
  10. SERTRALINE [Interacting]
     Active Substance: SERTRALINE HYDROCHLORIDE
     Indication: Bipolar disorder
     Dosage: UNK
     Route: 065
  11. SERTRALINE [Interacting]
     Active Substance: SERTRALINE HYDROCHLORIDE
     Dosage: UNK
     Route: 048
  12. SERTRALINE [Interacting]
     Active Substance: SERTRALINE HYDROCHLORIDE
     Indication: Bipolar disorder
     Dosage: 400 MILLIGRAM, BID
     Route: 065
  13. SERTRALINE [Interacting]
     Active Substance: SERTRALINE HYDROCHLORIDE
     Dosage: UNK
     Route: 065
  14. SERTRALINE [Interacting]
     Active Substance: SERTRALINE HYDROCHLORIDE
     Dosage: UNK
     Route: 048
  15. SERTRALINE [Interacting]
     Active Substance: SERTRALINE HYDROCHLORIDE
     Dosage: UNK
     Route: 065
  16. SERTRALINE [Interacting]
     Active Substance: SERTRALINE HYDROCHLORIDE
     Indication: Bipolar disorder
     Dosage: UNK
     Route: 065
  17. SERTRALINE [Interacting]
     Active Substance: SERTRALINE HYDROCHLORIDE
     Dosage: 400 MILLIGRAM, BID
     Route: 065
  18. CELECOXIB [Interacting]
     Active Substance: CELECOXIB
     Indication: Psychotic disorder
     Dosage: UNK
     Route: 065
  19. QUETIAPINE [Interacting]
     Active Substance: QUETIAPINE
     Indication: HIV infection
     Dosage: UNK
     Route: 065
  20. QUETIAPINE [Interacting]
     Active Substance: QUETIAPINE
     Indication: Bipolar disorder
     Dosage: UNK
     Route: 048
  21. QUETIAPINE [Interacting]
     Active Substance: QUETIAPINE
     Indication: Bipolar disorder
     Dosage: UNK
     Route: 048
  22. QUETIAPINE [Interacting]
     Active Substance: QUETIAPINE
     Indication: HIV infection
     Dosage: 400 MILLIGRAM, BIWEEKLY
     Route: 048
  23. QUETIAPINE [Interacting]
     Active Substance: QUETIAPINE
     Dosage: UNK
     Route: 065
  24. QUETIAPINE [Interacting]
     Active Substance: QUETIAPINE
     Dosage: 400 MILLIGRAM, QID
     Route: 048
  25. QUETIAPINE [Interacting]
     Active Substance: QUETIAPINE
     Dosage: 2 DOSAGE FORM, QD
     Route: 048
  26. QUETIAPINE [Interacting]
     Active Substance: QUETIAPINE
     Indication: HIV infection
     Dosage: UNK
     Route: 048
  27. QUETIAPINE [Interacting]
     Active Substance: QUETIAPINE
     Indication: Bipolar disorder
  28. QUETIAPINE [Interacting]
     Active Substance: QUETIAPINE
     Indication: Bipolar disorder
     Dosage: 400 MILLIGRAM, BIWEEKLY  114.2857 MG
     Route: 048
  29. QUETIAPINE [Interacting]
     Active Substance: QUETIAPINE
     Indication: HIV infection
     Dosage: 2 DF, QD
     Route: 048
  30. QUETIAPINE [Interacting]
     Active Substance: QUETIAPINE
     Dosage: UNK
     Route: 065
  31. QUETIAPINE [Interacting]
     Active Substance: QUETIAPINE
     Indication: Bipolar disorder
     Dosage: UNK
     Route: 048
  32. QUETIAPINE [Interacting]
     Active Substance: QUETIAPINE
     Indication: HIV infection
     Dosage: UNK
     Route: 065
  33. QUETIAPINE [Interacting]
     Active Substance: QUETIAPINE
     Dosage: 400 MILLIGRAM, BIWEEKLY
     Route: 048
  34. QUETIAPINE [Interacting]
     Active Substance: QUETIAPINE
     Dosage: 2 DOSAGE FORM, QD
     Route: 048
  35. QUETIAPINE [Interacting]
     Active Substance: QUETIAPINE
     Dosage: 400 MILLIGRAM, QID
     Route: 048
  36. QUETIAPINE [Interacting]
     Active Substance: QUETIAPINE
     Dosage: 400 MILLIGRAM, BIWEEKLY (QOW)
     Route: 065
  37. QUETIAPINE [Interacting]
     Active Substance: QUETIAPINE
     Dosage: 800 MILLIGRAM, BIWEEKLY (QOW, TWICE A WEEK))
     Route: 065
  38. ATAZANAVIR [Interacting]
     Active Substance: ATAZANAVIR
     Indication: HIV infection
     Dosage: UNK
     Route: 065
  39. ATAZANAVIR [Interacting]
     Active Substance: ATAZANAVIR
     Dosage: UNK
     Route: 048
  40. ATAZANAVIR [Interacting]
     Active Substance: ATAZANAVIR
     Dosage: UNK
     Route: 005
  41. BUPROPION [Interacting]
     Active Substance: BUPROPION
     Indication: Bipolar disorder
     Dosage: UNK
     Route: 065
  42. BUPROPION [Interacting]
     Active Substance: BUPROPION
     Dosage: UNK
     Route: 048
  43. EFAVIRENZ [Interacting]
     Active Substance: EFAVIRENZ
     Indication: HIV infection
     Dosage: UNK
     Route: 048
  44. EFAVIRENZ [Interacting]
     Active Substance: EFAVIRENZ
     Dosage: 400 MILLIGRAM, BID
     Route: 048
  45. EFAVIRENZ [Interacting]
     Active Substance: EFAVIRENZ
     Dosage: 800 MILLIGRAM, QD
     Route: 048
  46. EFAVIRENZ [Interacting]
     Active Substance: EFAVIRENZ
     Dosage: 1 DOSAGE FORM, BID
     Route: 048
  47. EFAVIRENZ [Interacting]
     Active Substance: EFAVIRENZ
     Dosage: UNK
     Route: 065
  48. EFAVIRENZ [Interacting]
     Active Substance: EFAVIRENZ
     Dosage: 400 MILLIGRAM
     Route: 065
  49. EFAVIRENZ [Interacting]
     Active Substance: EFAVIRENZ
     Dosage: 400 MILLIGRAM, BID
     Route: 065
  50. EFAVIRENZ [Interacting]
     Active Substance: EFAVIRENZ
     Dosage: 400 MILLIGRAM, QD
     Route: 065
  51. CLONAZEPAM [Interacting]
     Active Substance: CLONAZEPAM
     Indication: Bipolar disorder
     Dosage: UNK
     Route: 065
  52. CLONAZEPAM [Interacting]
     Active Substance: CLONAZEPAM
     Dosage: UNK
     Route: 048
  53. ZOPICLONE [Interacting]
     Active Substance: ZOPICLONE
     Indication: Bipolar disorder
     Dosage: UNK
     Route: 048
  54. ZOPICLONE [Interacting]
     Active Substance: ZOPICLONE
     Dosage: UNK
     Route: 065
  55. ZOPICLONE [Interacting]
     Active Substance: ZOPICLONE
     Dosage: 10 MILLIGRAM
     Route: 048
  56. RALTEGRAVIR POTASSIUM [Interacting]
     Active Substance: RALTEGRAVIR POTASSIUM
     Indication: HIV infection
     Dosage: 800 MILLIGRAM BID
     Route: 048
  57. RALTEGRAVIR POTASSIUM [Interacting]
     Active Substance: RALTEGRAVIR POTASSIUM
     Dosage: 1 DOSAGE FORM, BID
     Route: 048
  58. RALTEGRAVIR POTASSIUM [Interacting]
     Active Substance: RALTEGRAVIR POTASSIUM
     Dosage: UNK
     Route: 048
  59. RALTEGRAVIR POTASSIUM [Interacting]
     Active Substance: RALTEGRAVIR POTASSIUM
     Dosage: UNK, QD (2 EVERY 1 DAYS)
     Route: 048
  60. RALTEGRAVIR POTASSIUM [Interacting]
     Active Substance: RALTEGRAVIR POTASSIUM
     Dosage: 2 MILLIGRAM, QD
     Route: 065
  61. RALTEGRAVIR POTASSIUM [Interacting]
     Active Substance: RALTEGRAVIR POTASSIUM
     Dosage: 400 MILLILITER, QD
     Route: 048
  62. RALTEGRAVIR POTASSIUM [Interacting]
     Active Substance: RALTEGRAVIR POTASSIUM
     Dosage: 400 MILLIGRAM, BID
     Route: 048
  63. RALTEGRAVIR POTASSIUM [Interacting]
     Active Substance: RALTEGRAVIR POTASSIUM
     Dosage: 400 MILLIGRAM
     Route: 048
  64. RALTEGRAVIR POTASSIUM [Interacting]
     Active Substance: RALTEGRAVIR POTASSIUM
     Dosage: 2 DOSAGE FORM, QD
     Route: 065
  65. RALTEGRAVIR POTASSIUM [Interacting]
     Active Substance: RALTEGRAVIR POTASSIUM
     Dosage: 400 MILLIGRAM, QD
     Route: 048
  66. RALTEGRAVIR POTASSIUM [Interacting]
     Active Substance: RALTEGRAVIR POTASSIUM
     Dosage: 800 MILLIGRAM, QD
     Route: 048
  67. RALTEGRAVIR POTASSIUM [Interacting]
     Active Substance: RALTEGRAVIR POTASSIUM
     Dosage: 400 MILLIGRAM, QID
     Route: 048
  68. KALETRA [Interacting]
     Active Substance: LOPINAVIR\RITONAVIR
     Indication: HIV infection
     Dosage: UNK
     Route: 065
  69. KALETRA [Interacting]
     Active Substance: LOPINAVIR\RITONAVIR
     Indication: Bipolar disorder
     Dosage: UNK
     Route: 048
  70. LOPINAVIR\RITONAVIR [Interacting]
     Active Substance: LOPINAVIR\RITONAVIR
     Indication: HIV infection
     Dosage: UNK
     Route: 048
  71. LOPINAVIR\RITONAVIR [Interacting]
     Active Substance: LOPINAVIR\RITONAVIR
     Indication: Bipolar disorder
     Dosage: UNK
     Route: 065
  72. LOPINAVIR\RITONAVIR [Interacting]
     Active Substance: LOPINAVIR\RITONAVIR
     Dosage: 400 MILLIGRAM, BID
     Route: 048
  73. LAMIVUDINE [Interacting]
     Active Substance: LAMIVUDINE
     Indication: HIV infection
     Dosage: UNK
     Route: 065
  74. LAMIVUDINE [Interacting]
     Active Substance: LAMIVUDINE
     Dosage: UNK
     Route: 005
  75. BUPROPION HYDROCHLORIDE [Interacting]
     Active Substance: BUPROPION HYDROCHLORIDE
     Indication: Bipolar disorder
     Dosage: UNK
     Route: 048
  76. BUPROPION HYDROCHLORIDE [Interacting]
     Active Substance: BUPROPION HYDROCHLORIDE
     Dosage: UNK
     Route: 065
  77. LAMIVUDINE [Interacting]
     Active Substance: LAMIVUDINE
     Indication: HIV infection
     Dosage: UNK
     Route: 065
  78. LAMIVUDINE [Interacting]
     Active Substance: LAMIVUDINE
     Indication: Bipolar disorder
     Dosage: UNK
     Route: 005
  79. LAMIVUDINE [Interacting]
     Active Substance: LAMIVUDINE
     Dosage: UNK
     Route: 048
  80. RALTEGRAVIR [Interacting]
     Active Substance: RALTEGRAVIR
     Indication: HIV infection
     Dosage: 400 MILLIGRAM, BID
     Route: 065
  81. RALTEGRAVIR [Interacting]
     Active Substance: RALTEGRAVIR
     Dosage: 800 MILLIGRAM, QD
     Route: 048
  82. RALTEGRAVIR [Interacting]
     Active Substance: RALTEGRAVIR
     Dosage: UNK
     Route: 048
  83. RALTEGRAVIR [Interacting]
     Active Substance: RALTEGRAVIR
     Dosage: UNK
     Route: 065
  84. RALTEGRAVIR [Interacting]
     Active Substance: RALTEGRAVIR
     Dosage: 400 MILLIGRAM
     Route: 048
  85. RALTEGRAVIR [Interacting]
     Active Substance: RALTEGRAVIR
     Dosage: 400 MILLIGRAM, QD
     Route: 048
  86. RALTEGRAVIR [Interacting]
     Active Substance: RALTEGRAVIR
     Dosage: 800 MILLIGRAM, QD
     Route: 048
  87. ATAZANAVIR [Interacting]
     Active Substance: ATAZANAVIR
     Indication: HIV infection
     Dosage: UNK
     Route: 065
  88. ATAZANAVIR [Interacting]
     Active Substance: ATAZANAVIR
     Indication: Bipolar disorder
     Dosage: UNK
     Route: 005
  89. ATAZANAVIR [Interacting]
     Active Substance: ATAZANAVIR
     Dosage: UNK
     Route: 048
  90. ISENTRESS [Interacting]
     Active Substance: RALTEGRAVIR POTASSIUM
     Indication: HIV infection
     Dosage: 400 MILLIGRAM, BID
     Route: 048
  91. ISENTRESS [Interacting]
     Active Substance: RALTEGRAVIR POTASSIUM
     Dosage: UNK DOSAGE FORM
     Route: 065
  92. ISENTRESS [Interacting]
     Active Substance: RALTEGRAVIR POTASSIUM
     Dosage: UNK
     Route: 048
  93. ISENTRESS [Interacting]
     Active Substance: RALTEGRAVIR POTASSIUM
     Dosage: 1 DOSAGE FORM
     Route: 048
  94. ISENTRESS [Interacting]
     Active Substance: RALTEGRAVIR POTASSIUM
     Dosage: 1 DOSAGE FORM, BID
     Route: 048
  95. ISENTRESS [Interacting]
     Active Substance: RALTEGRAVIR POTASSIUM
     Dosage: 2 DOSAGE FORM, QD
     Route: 048
  96. ISENTRESS [Interacting]
     Active Substance: RALTEGRAVIR POTASSIUM
     Dosage: 800 MILLIGRAM, BID
     Route: 048
  97. ISENTRESS [Interacting]
     Active Substance: RALTEGRAVIR POTASSIUM
     Dosage: 800 MILLIGRAM, QD
     Route: 048
  98. SUSTIVA [Interacting]
     Active Substance: EFAVIRENZ
     Indication: Product used for unknown indication
     Dosage: 400 MILLIGRAM, BID
     Route: 065
  99. SUSTIVA [Interacting]
     Active Substance: EFAVIRENZ
     Dosage: UNK
     Route: 065
  100. SUSTIVA [Interacting]
     Active Substance: EFAVIRENZ
     Dosage: UNK, BID
     Route: 048
  101. SUSTIVA [Interacting]
     Active Substance: EFAVIRENZ
     Dosage: 400 MILLIGRAM, BID
     Route: 048
  102. SUSTIVA [Interacting]
     Active Substance: EFAVIRENZ
     Dosage: 800 MILLIGRAM, QD
     Route: 048
  103. KALETRA [Interacting]
     Active Substance: LOPINAVIR\RITONAVIR
     Indication: HIV infection
     Dosage: UNK
     Route: 048
  104. KALETRA [Interacting]
     Active Substance: LOPINAVIR\RITONAVIR
     Indication: Bipolar disorder
     Dosage: 400 MILLIGRAM, BID
     Route: 048
  105. BUPROPION [Interacting]
     Active Substance: BUPROPION
     Indication: Bipolar disorder
     Dosage: UNK
     Route: 065
  106. BUPROPION [Interacting]
     Active Substance: BUPROPION
     Dosage: UNK
     Route: 048
  107. LAMIVUDINE [Interacting]
     Active Substance: LAMIVUDINE
     Indication: HIV infection
     Dosage: UNK
     Route: 048
  108. LAMIVUDINE [Interacting]
     Active Substance: LAMIVUDINE
     Indication: Bipolar disorder
  109. RALTEGRAVIR POTASSIUM [Interacting]
     Active Substance: RALTEGRAVIR POTASSIUM
     Indication: Product used for unknown indication
     Dosage: 400 MILLIGRAM, BID
     Route: 048
  110. RALTEGRAVIR POTASSIUM [Interacting]
     Active Substance: RALTEGRAVIR POTASSIUM
     Dosage: UNK
     Route: 065
  111. RALTEGRAVIR POTASSIUM [Interacting]
     Active Substance: RALTEGRAVIR POTASSIUM
     Dosage: 400 MILLIGRAM, QD
     Route: 048
  112. RALTEGRAVIR POTASSIUM [Interacting]
     Active Substance: RALTEGRAVIR POTASSIUM
     Dosage: 1 DOSAGE FORM, QD
     Route: 048
  113. ATAZANAVIR SULFATE [Interacting]
     Active Substance: ATAZANAVIR SULFATE
     Indication: HIV infection
     Dosage: UNK
     Route: 005
  114. ATAZANAVIR SULFATE [Interacting]
     Active Substance: ATAZANAVIR SULFATE
     Dosage: UNK
     Route: 048
  115. ATAZANAVIR SULFATE [Interacting]
     Active Substance: ATAZANAVIR SULFATE
     Dosage: UNK
     Route: 065
  116. ABACAVIR SULFATE\LAMIVUDINE\ZIDOVUDINE [Interacting]
     Active Substance: ABACAVIR SULFATE\LAMIVUDINE\ZIDOVUDINE
     Indication: HIV infection
     Dosage: UNK
     Route: 065
  117. EFAVIRENZ [Interacting]
     Active Substance: EFAVIRENZ
     Indication: HIV infection
     Dosage: 400 MILLIGRAM, BID
     Route: 048
  118. EFAVIRENZ [Interacting]
     Active Substance: EFAVIRENZ
     Dosage: 1 DOSAGE FORM, BID
     Route: 048
  119. EFAVIRENZ [Interacting]
     Active Substance: EFAVIRENZ
     Dosage: 400 MILLIGRAM, QD
     Route: 048
  120. EFAVIRENZ [Interacting]
     Active Substance: EFAVIRENZ
     Dosage: 800 MILLIGRAM, BID
     Route: 048
  121. ATAZANAVIR SULFATE\COBICISTAT [Interacting]
     Active Substance: ATAZANAVIR SULFATE\COBICISTAT
     Indication: HIV infection
     Dosage: UNK
     Route: 048
  122. RISPERIDONE [Interacting]
     Active Substance: RISPERIDONE
     Indication: Depression
     Dosage: UNK
     Route: 065
  123. ENFUVIRTIDE [Interacting]
     Active Substance: ENFUVIRTIDE
     Indication: HIV infection
     Dosage: UNK
     Route: 065
  124. CITALOPRAM HYDROBROMIDE [Interacting]
     Active Substance: CITALOPRAM HYDROBROMIDE
     Indication: Psychotic disorder
     Dosage: UNK
     Route: 065
  125. BUPROPION HYDROBROMIDE [Interacting]
     Active Substance: BUPROPION HYDROBROMIDE
     Indication: Bipolar disorder
     Dosage: UNK
     Route: 048
  126. VALPROATE SODIUM [Interacting]
     Active Substance: VALPROATE SODIUM
     Indication: Bipolar disorder
     Dosage: UNK
     Route: 048
  127. SUSTIVA [Interacting]
     Active Substance: EFAVIRENZ
     Indication: HIV infection
     Dosage: 400 MILLIGRAM, QD
     Route: 048
  128. SUSTIVA [Interacting]
     Active Substance: EFAVIRENZ
     Dosage: 800 MILLIGRAM, QD
     Route: 048
  129. SUSTIVA [Interacting]
     Active Substance: EFAVIRENZ
     Dosage: UNK
     Route: 065
  130. SUSTIVA [Interacting]
     Active Substance: EFAVIRENZ
     Dosage: 400 MILLIGRAM, BID (Q12H)
     Route: 048
  131. ENFUVIRTIDE [Concomitant]
     Active Substance: ENFUVIRTIDE
     Dosage: UNK
     Route: 065
  132. ENFUVIRTIDE [Concomitant]
     Active Substance: ENFUVIRTIDE
     Dosage: UNK, BID
     Route: 048
  133. CLONAZEPAM [Concomitant]
     Active Substance: CLONAZEPAM
     Dosage: UNK
     Route: 065
  134. KALETRA [Concomitant]
     Active Substance: LOPINAVIR\RITONAVIR
     Dosage: UNK
     Route: 065
  135. ENFUVIRTIDE [Concomitant]
     Active Substance: ENFUVIRTIDE
     Dosage: UNK
     Route: 065
  136. TENOFOVIR DISOPROXIL FUMARATE [Concomitant]
     Active Substance: TENOFOVIR DISOPROXIL FUMARATE
     Dosage: UNK
     Route: 065
  137. EMTRICITABINE [Concomitant]
     Active Substance: EMTRICITABINE
     Dosage: UNK
     Route: 065

REACTIONS (17)
  - Depression [Fatal]
  - Drug interaction [Fatal]
  - Loss of personal independence in daily activities [Fatal]
  - Intentional product use issue [Fatal]
  - Incorrect route of product administration [Fatal]
  - Prescribed overdose [Fatal]
  - Product use in unapproved indication [Fatal]
  - Anxiety [Unknown]
  - Tearfulness [Unknown]
  - Suicidal ideation [Unknown]
  - Psychotic disorder [Unknown]
  - Psychomotor skills impaired [Unknown]
  - Lymphoproliferative disorder [Unknown]
  - Psychiatric decompensation [Unknown]
  - Paranoia [Unknown]
  - Depressive symptom [Unknown]
  - Depression suicidal [Unknown]
